FAERS Safety Report 10628972 (Version 1)
Quarter: 2014Q4

REPORT INFORMATION
  Report Type: Spontaneous
  Country: US (occurrence: US)
  Receive Date: 20141205
  Receipt Date: 20141205
  Transmission Date: 20150529
  Serious: No
  Sender: FDA-Public Use
  Company Number: US-BRISTOL-MYERS SQUIBB COMPANY-21515861

PATIENT

DRUGS (5)
  1. WARFARIN SODIUM. [Suspect]
     Active Substance: WARFARIN SODIUM
  2. HUMALOG [Suspect]
     Active Substance: INSULIN LISPRO
  3. LEVEMIR [Suspect]
     Active Substance: INSULIN DETEMIR
  4. VICTOZA [Suspect]
     Active Substance: LIRAGLUTIDE
  5. INVOKANA [Suspect]
     Active Substance: CANAGLIFLOZIN

REACTIONS (2)
  - Weight increased [Unknown]
  - Blood glucose increased [Unknown]
